FAERS Safety Report 8089144-3 (Version None)
Quarter: 2012Q1

REPORT INFORMATION
  Report Type: 
  Country: None (occurrence: None)
  Receive Date: 20120128
  Receipt Date: 20110715
  Transmission Date: 20120608
  Serious: No
  Sender: FDA-Public Use
  Company Number: US-ABBOTT-11P-163-0838181-00

PATIENT
  Sex: Female
  Weight: 63.106 kg

DRUGS (6)
  1. CLARITIN [Concomitant]
     Indication: HYPERSENSITIVITY
  2. FOLIC ACID [Concomitant]
     Indication: SUPPLEMENTATION THERAPY
  3. HUMIRA [Suspect]
     Indication: CROHN'S DISEASE
     Dates: start: 20110525, end: 20110708
  4. VITAMIN B-12 [Concomitant]
     Indication: SUPPLEMENTATION THERAPY
  5. ENTOCORT EC [Concomitant]
     Indication: CROHN'S DISEASE
  6. MERCAPTOPURINE [Concomitant]
     Indication: CROHN'S DISEASE

REACTIONS (7)
  - BURNING SENSATION [None]
  - FATIGUE [None]
  - RASH [None]
  - ORAL DISCOMFORT [None]
  - URTICARIA [None]
  - GLOSSODYNIA [None]
  - ACNE [None]
